FAERS Safety Report 24627203 (Version 1)
Quarter: 2024Q4

REPORT INFORMATION
  Report Type: Report from Study
  Country: US (occurrence: US)
  Receive Date: 20241116
  Receipt Date: 20241116
  Transmission Date: 20250114
  Serious: Yes (Hospitalization)
  Sender: ROCHE
  Company Number: US-ROCHE-10000131195

PATIENT
  Age: 67 Year
  Sex: Female

DRUGS (1)
  1. COTELLIC [Suspect]
     Active Substance: COBIMETINIB
     Indication: Intraductal proliferative breast lesion
     Dosage: TAKE 1 TABLET BY MOUTH EVERY DAY FOR 21 DAYS THEN STOP FOR 7 DAYS THEN REPEAT CYCLE
     Route: 048

REACTIONS (3)
  - Off label use [Unknown]
  - Pulmonary thrombosis [Unknown]
  - Infection [Unknown]
